FAERS Safety Report 7779162-4 (Version None)
Quarter: 2011Q3

REPORT INFORMATION
  Report Type: 
  Country: None (occurrence: None)
  Receive Date: 20110926
  Receipt Date: 20110913
  Transmission Date: 20111222
  Serious: No
  Sender: FDA-Public Use
  Company Number: CA-ELI_LILLY_AND_COMPANY-CA201109003237

PATIENT
  Sex: Female

DRUGS (3)
  1. SEROQUEL [Concomitant]
  2. DIVALPROEX SODIUM [Concomitant]
  3. ZYPREXA ZYDIS [Suspect]
     Dosage: 10 MG, EACH EVENING

REACTIONS (22)
  - MENORRHAGIA [None]
  - DIZZINESS [None]
  - EYE MOVEMENT DISORDER [None]
  - VARICOSE VEIN [None]
  - ABDOMINAL DISCOMFORT [None]
  - CONSTIPATION [None]
  - WEIGHT INCREASED [None]
  - FLUID RETENTION [None]
  - SENSITIVITY OF TEETH [None]
  - VISION BLURRED [None]
  - TINEA PEDIS [None]
  - ABDOMINAL DISTENSION [None]
  - PARAESTHESIA [None]
  - BLOOD TRIGLYCERIDES INCREASED [None]
  - HYPERTENSION [None]
  - HYPERKERATOSIS PALMARIS AND PLANTARIS [None]
  - FOOT DEFORMITY [None]
  - FATIGUE [None]
  - DRY MOUTH [None]
  - BLOOD CHOLESTEROL INCREASED [None]
  - NERVOUSNESS [None]
  - GAIT DISTURBANCE [None]
